FAERS Safety Report 16321569 (Version 2)
Quarter: 2019Q2

REPORT INFORMATION
  Report Type: Report from Study
  Country: US (occurrence: US)
  Receive Date: 20190516
  Receipt Date: 20190613
  Transmission Date: 20190711
  Serious: Yes (Disabling, Other)
  Sender: FDA-Public Use
  Company Number: US-REGENERON PHARMACEUTICALS, INC.-2019-15387

PATIENT

DRUGS (5)
  1. EYLEA [Suspect]
     Active Substance: AFLIBERCEPT
     Dosage: 0.05 UNK, EVERY 3 MONTHS
     Route: 031
     Dates: start: 20190206, end: 20190206
  2. EYLEA [Suspect]
     Active Substance: AFLIBERCEPT
     Dosage: 0.05 UNK, EVERY 3 MONTHS
     Route: 031
  3. EYLEA [Suspect]
     Active Substance: AFLIBERCEPT
     Indication: CHOROIDAL NEOVASCULARISATION
     Dosage: 0.05 UNK, EVERY 3 MONTHS
     Route: 031
     Dates: start: 20140222, end: 20140222
  4. EYLEA [Suspect]
     Active Substance: AFLIBERCEPT
     Indication: NEOVASCULAR AGE-RELATED MACULAR DEGENERATION
     Dosage: UNK
     Route: 031
  5. EYLEA [Suspect]
     Active Substance: AFLIBERCEPT
     Dosage: 0.05 UNK, EVERY 3 MONTHS
     Route: 031
     Dates: start: 20180606, end: 20180606

REACTIONS (5)
  - Blindness transient [Not Recovered/Not Resolved]
  - Cerebrovascular accident [Recovered/Resolved]
  - Blindness unilateral [Unknown]
  - Product dose omission [Unknown]
  - Hypertension [Unknown]

NARRATIVE: CASE EVENT DATE: 20180606
